FAERS Safety Report 5126066-1 (Version None)
Quarter: 2006Q4

REPORT INFORMATION
  Report Type: 
  Country: None (occurrence: None)
  Receive Date: 20061010
  Receipt Date: 20061010
  Transmission Date: 20070319
  Serious: Yes (Death)
  Sender: FDA-Public Use
  Company Number: None

PATIENT
  Sex: Female
  Weight: 108.8633 kg

DRUGS (4)
  1. FLUDEOXYGLUCOSE [Suspect]
     Indication: POSITRON EMISSION TOMOGRAM
     Dosage: 13.9MCI, SINGLE DOSE, 042
     Dates: start: 20060906
  2. GASTROGRAFIN [Suspect]
     Indication: COMPUTERISED TOMOGRAM
     Dosage: 16 ML, SINGLE DOSE, 047
     Dates: start: 20060906
  3. INSULIN AND ORAL DIABETES MEDICATIONS [Concomitant]
  4. PREDNISONE TAB [Concomitant]

REACTIONS (7)
  - AGITATION [None]
  - DYSPNOEA [None]
  - HYPERHIDROSIS [None]
  - LOSS OF CONSCIOUSNESS [None]
  - MYOCARDIAL INFARCTION [None]
  - PULMONARY EMBOLISM [None]
  - RESPIRATORY ARREST [None]
